FAERS Safety Report 4540593-7 (Version None)
Quarter: 2004Q4

REPORT INFORMATION
  Report Type: 
  Country: None (occurrence: None)
  Receive Date: 20041228
  Receipt Date: 20041228
  Transmission Date: 20050328
  Serious: No
  Sender: FDA-Public Use
  Company Number: None

PATIENT
  Age: 62 Year
  Sex: Male

DRUGS (2)
  1. PRIMAXIN [Suspect]
  2. CIPRO [Suspect]

REACTIONS (2)
  - CONVULSION [None]
  - INFUSION RELATED REACTION [None]
